FAERS Safety Report 9059253 (Version 15)
Quarter: 2014Q2

REPORT INFORMATION
  Report Type: Report from Study
  Country: US (occurrence: US)
  Receive Date: 20130125
  Receipt Date: 20140430
  Transmission Date: 20141212
  Serious: Yes (Hospitalization)
  Sender: FDA-Public Use
  Company Number: US-ROCHE-1177181

PATIENT
  Age: 29 Year
  Sex: Female
  Weight: 54.5 kg

DRUGS (84)
  1. VANCOMYCIN [Suspect]
     Indication: OSTEOMYELITIS
     Route: 042
     Dates: start: 20120110
  2. VANCOMYCIN [Suspect]
     Indication: SKIN ULCER
     Route: 042
     Dates: start: 20130103, end: 20130103
  3. VANCOMYCIN [Suspect]
     Indication: INFECTION
     Route: 042
     Dates: start: 20130104, end: 20130104
  4. VANCOMYCIN [Suspect]
     Route: 042
     Dates: start: 20130105, end: 20130204
  5. VANCOMYCIN [Suspect]
     Route: 042
     Dates: start: 20130113, end: 20130113
  6. VANCOMYCIN [Suspect]
     Route: 042
     Dates: start: 20130114, end: 20130114
  7. VANCOMYCIN [Suspect]
     Route: 042
     Dates: start: 20130114, end: 20130124
  8. HYDROCODONE BITARTRATE [Concomitant]
     Indication: PAIN
     Route: 048
     Dates: start: 20120808
  9. IBUPROFEN [Concomitant]
     Indication: ARTHRALGIA
     Route: 048
     Dates: start: 20121022, end: 20130131
  10. IBUPROFEN [Concomitant]
     Route: 048
     Dates: start: 20121022
  11. AMLODIPINE [Concomitant]
     Indication: RAYNAUD^S PHENOMENON
     Route: 048
     Dates: start: 20121022, end: 20130126
  12. AMLODIPINE [Concomitant]
     Route: 048
     Dates: start: 20121022
  13. AMLODIPINE [Concomitant]
     Route: 048
     Dates: start: 20130127
  14. GABAPENTIN [Concomitant]
     Indication: PRURITUS
     Route: 048
     Dates: start: 20121106
  15. GABAPENTIN [Concomitant]
     Route: 048
     Dates: start: 20121022, end: 20121205
  16. GABAPENTIN [Concomitant]
     Route: 048
     Dates: start: 20121221
  17. LOSARTAN [Concomitant]
     Indication: RAYNAUD^S PHENOMENON
     Route: 048
     Dates: start: 20121106
  18. NIFEDIPINE [Concomitant]
     Indication: SKIN ULCER
     Route: 061
     Dates: start: 201211, end: 201301
  19. LIDOCAINE [Concomitant]
     Indication: SKIN ULCER
     Route: 061
     Dates: start: 201211, end: 20130225
  20. LIDOCAINE [Concomitant]
     Indication: DYSPEPSIA
     Route: 048
     Dates: start: 20130106, end: 20130106
  21. SILVADENE [Concomitant]
     Indication: SKIN ULCER
     Route: 061
     Dates: start: 20130105
  22. ZOFRAN [Concomitant]
     Indication: NAUSEA
     Route: 042
     Dates: start: 20130103, end: 20130105
  23. OXYCODONE [Concomitant]
     Indication: PAIN
     Route: 042
     Dates: start: 20130103, end: 20130105
  24. OXYCODONE [Concomitant]
     Route: 048
     Dates: start: 20130104, end: 20130106
  25. OXYCODONE [Concomitant]
     Route: 048
     Dates: start: 20130114, end: 20130120
  26. MORPHINE [Concomitant]
     Indication: PAIN
     Route: 042
     Dates: start: 20130103, end: 20130105
  27. MORPHINE [Concomitant]
     Route: 048
     Dates: start: 20130105
  28. ATIVAN [Concomitant]
     Indication: ANXIETY
     Route: 042
     Dates: start: 20130103, end: 20130103
  29. ATIVAN [Concomitant]
     Route: 048
     Dates: start: 20130104, end: 20130106
  30. SENNA [Concomitant]
     Indication: CONSTIPATION
     Route: 048
     Dates: start: 20130103, end: 20130104
  31. SENNA [Concomitant]
     Route: 050
     Dates: start: 20130115, end: 20130118
  32. MIRALAX [Concomitant]
     Indication: CONSTIPATION
     Route: 048
     Dates: start: 20130103, end: 20130104
  33. TRAZODONE [Concomitant]
     Indication: SLEEP DISORDER
     Route: 048
     Dates: start: 20130103, end: 20130106
  34. LOVENOX [Concomitant]
     Indication: PROPHYLAXIS
     Route: 058
     Dates: start: 20130104, end: 20130106
  35. LOVENOX [Concomitant]
     Route: 058
     Dates: start: 20130120, end: 20130127
  36. HEPARIN FLUSH [Concomitant]
     Indication: PROPHYLAXIS
     Route: 042
     Dates: start: 20130104, end: 20130106
  37. HEPARIN FLUSH [Concomitant]
     Route: 058
     Dates: start: 20130113, end: 20130120
  38. HEPARIN FLUSH [Concomitant]
     Route: 042
     Dates: start: 20130116, end: 20130127
  39. SODIUM CHLORIDE [Concomitant]
     Indication: PROPHYLAXIS
     Route: 042
     Dates: start: 20130104, end: 20130106
  40. SODIUM CHLORIDE [Concomitant]
     Route: 042
     Dates: start: 20130115, end: 20130115
  41. SODIUM CHLORIDE [Concomitant]
     Route: 042
     Dates: start: 20130116, end: 20130118
  42. SODIUM CHLORIDE [Concomitant]
     Route: 042
     Dates: start: 20130118, end: 20130118
  43. MAALOX (CALCIUM CARBONATE) [Concomitant]
     Indication: DYSPEPSIA
     Route: 048
     Dates: start: 20130106, end: 20130106
  44. MILK OF MAGNESIA [Concomitant]
     Indication: CONSTIPATION
     Route: 048
     Dates: start: 2012, end: 20130131
  45. FISH OIL [Concomitant]
     Route: 048
     Dates: start: 20130501
  46. PROPOFOL [Concomitant]
     Indication: BRONCHOSCOPY
     Route: 042
     Dates: start: 20130116, end: 20130116
  47. PROPOFOL [Concomitant]
     Indication: SEDATION
     Route: 042
     Dates: start: 20130113, end: 20130118
  48. FENTANYL [Concomitant]
     Indication: BRONCHOSCOPY
     Route: 042
     Dates: start: 20130116, end: 20130116
  49. FENTANYL [Concomitant]
     Indication: AGITATION
     Route: 042
     Dates: start: 20130113, end: 20130113
  50. FENTANYL [Concomitant]
     Route: 042
     Dates: start: 20130114, end: 20130114
  51. MEROPENEM [Concomitant]
     Indication: INFECTION PROPHYLAXIS
     Route: 042
     Dates: start: 20130127, end: 20130203
  52. MEROPENEM [Concomitant]
     Route: 042
     Dates: start: 20130120, end: 20130127
  53. MEROPENEM [Concomitant]
     Route: 042
     Dates: start: 20130116, end: 20130120
  54. HALDOL [Concomitant]
     Indication: AGITATION
     Route: 030
     Dates: start: 20130113, end: 20130113
  55. LORAZEPAM [Concomitant]
     Indication: AGITATION
     Route: 042
     Dates: start: 20130113, end: 20130113
  56. CEFTRIAXONE SODIUM [Concomitant]
     Indication: INFECTION
     Route: 042
     Dates: start: 20130113, end: 20130116
  57. ACYCLOVIR [Concomitant]
     Indication: INFECTION
     Route: 042
     Dates: start: 20130113, end: 20130116
  58. AMPICILLIN [Concomitant]
     Indication: INFECTION
     Route: 042
     Dates: start: 20130113, end: 20130116
  59. DOPAMINE [Concomitant]
     Route: 042
     Dates: start: 20130113, end: 20130117
  60. LACTATED RINGER^S [Concomitant]
     Route: 042
     Dates: start: 20130113, end: 20130113
  61. LACTATED RINGER^S [Concomitant]
     Route: 042
     Dates: start: 20130114, end: 20130114
  62. LACTATED RINGER^S [Concomitant]
     Route: 042
     Dates: start: 20130115, end: 20130115
  63. OMEPRAZOLE [Concomitant]
     Indication: PROPHYLAXIS
     Route: 050
     Dates: start: 20130114, end: 20130120
  64. HYDROMORPHONE [Concomitant]
     Indication: AGITATION
     Route: 042
     Dates: start: 20130114, end: 20130114
  65. HYDROMORPHONE [Concomitant]
     Route: 042
     Dates: start: 20130114, end: 20130115
  66. VECURONIUM [Concomitant]
     Route: 042
     Dates: start: 20130114, end: 20130114
  67. VECURONIUM [Concomitant]
     Route: 042
     Dates: start: 20130116, end: 20130117
  68. DOCUSATE [Concomitant]
     Route: 050
     Dates: start: 20130115, end: 20130118
  69. PHYTONADIONE [Concomitant]
     Indication: PROPHYLAXIS
     Route: 050
     Dates: start: 20130115, end: 20130115
  70. LACRI-LUBE REFRESH OINTMENT (UNITED STATES) [Concomitant]
     Indication: DRY EYE
     Dosage: DOSE : 1 OTHER
     Route: 061
     Dates: start: 20130116, end: 20130118
  71. CISATRACURIUM [Concomitant]
     Route: 042
     Dates: start: 20130116, end: 20130116
  72. CISATRACURIUM [Concomitant]
     Route: 042
     Dates: start: 20130116, end: 20130118
  73. POLYETHYLENE GLYCOL [Concomitant]
     Dosage: DOSE : 1 OTHER
     Route: 050
     Dates: start: 20130116, end: 20130116
  74. MAGNESIUM SULFATE [Concomitant]
     Route: 042
     Dates: start: 20130117, end: 20130117
  75. MAGNESIUM SULFATE [Concomitant]
     Route: 042
     Dates: start: 20130119, end: 20130119
  76. MAGNESIUM SULFATE [Concomitant]
     Route: 042
     Dates: start: 20130120, end: 20130120
  77. FUROSEMIDE [Concomitant]
     Indication: ACUTE RESPIRATORY DISTRESS SYNDROME
     Route: 042
     Dates: start: 20130116, end: 20130117
  78. FUROSEMIDE [Concomitant]
     Route: 042
     Dates: start: 20130117, end: 20130117
  79. FUROSEMIDE [Concomitant]
     Route: 042
     Dates: start: 20130118, end: 20130118
  80. POTASSIUM CHLORIDE [Concomitant]
     Dosage: DOSE : 40 OTHER
     Route: 050
     Dates: start: 20130117, end: 20130117
  81. POTASSIUM CHLORIDE [Concomitant]
     Dosage: DOSE : 40 OTHER
     Route: 042
     Dates: start: 20130119, end: 20130119
  82. POTASSIUM CHLORIDE [Concomitant]
     Dosage: DOSE : 40 OTHER
     Route: 042
     Dates: start: 20130120, end: 20130120
  83. DEXMEDETOMIDINE [Concomitant]
     Indication: SEDATION
     Dosage: DOSE : 200 OTHER
     Route: 042
     Dates: start: 20130118, end: 20130118
  84. TOCILIZUMAB [Suspect]
     Indication: SYSTEMIC SCLEROSIS
     Dosage: LAST DOSE PRIOR TO SAE ON 31/12/2012
     Route: 058
     Dates: start: 20121008

REACTIONS (2)
  - Osteomyelitis [Recovered/Resolved]
  - Psychotic disorder [Recovered/Resolved]
